FAERS Safety Report 4504964-7 (Version None)
Quarter: 2004Q4

REPORT INFORMATION
  Report Type: 
  Country: None (occurrence: None)
  Receive Date: 20041020
  Receipt Date: 20040726
  Transmission Date: 20050328
  Serious: No
  Sender: FDA-Public Use
  Company Number: 2004-05-2452

PATIENT
  Age: 40 Year
  Sex: Female
  Weight: 58.9676 kg

DRUGS (1)
  1. CLARINEX [Suspect]
     Dosage: 1 TAB ORAL
     Route: 048
     Dates: start: 20030429

REACTIONS (2)
  - OROPHARYNGEAL SWELLING [None]
  - PARAESTHESIA [None]
